FAERS Safety Report 5770642-X (Version None)
Quarter: 2008Q2

REPORT INFORMATION
  Report Type: 
  Country: None (occurrence: None)
  Receive Date: 20080613
  Receipt Date: 20080508
  Transmission Date: 20081010
  Serious: No
  Sender: FDA-Public Use
  Company Number: US-ABBOTT-08P-163-0451059-00

PATIENT
  Sex: Female
  Weight: 65.83 kg

DRUGS (5)
  1. HUMIRA [Suspect]
     Indication: RHEUMATOID ARTHRITIS
     Dosage: PEN
     Route: 058
     Dates: start: 20070401
  2. HUMIRA [Suspect]
     Dosage: SYRINGES
     Route: 058
     Dates: start: 20040501, end: 20070101
  3. METHOTREXATE [Concomitant]
     Indication: RHEUMATOID ARTHRITIS
     Dosage: 3 PILLS 2.5 MG EVERY 2 WEEKS, ORDERED WEEKLY
     Route: 048
     Dates: start: 20060101
  4. FOLIC ACID [Concomitant]
     Indication: VITAMIN SUPPLEMENTATION
     Dosage: TAKES WHEN REMEMBERS
     Route: 048
     Dates: start: 20070501
  5. LISINOPRIL [Concomitant]
     Indication: HYPERTENSION
     Dosage: 10 MG DAILY
     Route: 048

REACTIONS (5)
  - BENIGN SALIVARY GLAND NEOPLASM [None]
  - DYSPHAGIA [None]
  - DYSPHONIA [None]
  - NECK MASS [None]
  - SINUS DISORDER [None]
